FAERS Safety Report 12400950 (Version 2)
Quarter: 2016Q2

REPORT INFORMATION
  Report Type: Spontaneous
  Country: US (occurrence: US)
  Receive Date: 20160525
  Receipt Date: 20160525
  Transmission Date: 20160815
  Serious: No
  Sender: FDA-Public Use
  Company Number: US-SA-2015SA113053

PATIENT
  Age: 62 Year
  Sex: Female

DRUGS (4)
  1. LANTUS SOLOSTAR [Suspect]
     Active Substance: INSULIN GLARGINE
     Indication: TYPE 2 DIABETES MELLITUS
     Dosage: 32-50 UNITS?FREQUENCY MORNING AND?EVENING
     Route: 065
     Dates: start: 2015, end: 201507
  2. SOLOSTAR [Concomitant]
     Active Substance: DEVICE
     Dates: start: 201506
  3. LANTUS SOLOSTAR [Suspect]
     Active Substance: INSULIN GLARGINE
     Indication: TYPE 2 DIABETES MELLITUS
     Dosage: 32-50 UNITS?FREQUENCY MORNING AND?EVENING
     Route: 065
     Dates: start: 201506
  4. SOLOSTAR [Concomitant]
     Active Substance: DEVICE
     Dates: start: 2015, end: 201507

REACTIONS (3)
  - Injection site pain [Unknown]
  - Flushing [Unknown]
  - Drug administration error [Unknown]

NARRATIVE: CASE EVENT DATE: 2015
